FAERS Safety Report 6635631-1 (Version None)
Quarter: 2010Q1

REPORT INFORMATION
  Report Type: 
  Country: None (occurrence: None)
  Receive Date: 20100315
  Receipt Date: 20100303
  Transmission Date: 20100710
  Serious: Yes (Hospitalization, Other)
  Sender: FDA-Public Use
  Company Number: US-ROCHE-665913

PATIENT
  Sex: Male
  Weight: 65.8 kg

DRUGS (16)
  1. ACCUTANE [Suspect]
     Indication: ACNE
     Route: 065
     Dates: start: 20010125, end: 20010630
  2. ACCUTANE [Suspect]
     Route: 065
     Dates: start: 20011008, end: 20011108
  3. ACCUTANE [Suspect]
     Route: 065
     Dates: start: 20020120, end: 20020615
  4. ACCUTANE [Suspect]
     Route: 065
     Dates: start: 20020829, end: 20020929
  5. AMNESTEEM [Suspect]
     Indication: ACNE
     Route: 065
     Dates: start: 20021101, end: 20030101
  6. AMNESTEEM [Suspect]
     Route: 065
     Dates: start: 20031111, end: 20040123
  7. SOTRET [Suspect]
     Indication: ACNE
     Route: 065
     Dates: start: 20040305, end: 20040524
  8. SOTRET [Suspect]
     Route: 065
     Dates: start: 20040607, end: 20040816
  9. SOTRET [Suspect]
     Route: 065
     Dates: start: 20040921, end: 20041021
  10. SOTRET [Suspect]
     Route: 065
     Dates: start: 20050106, end: 20050401
  11. SOTRET [Suspect]
     Route: 065
     Dates: start: 20050520, end: 20050620
  12. SOTRET [Suspect]
     Route: 065
     Dates: start: 20050705, end: 20050805
  13. SOTRET [Suspect]
     Route: 065
     Dates: start: 20050915, end: 20051216
  14. SOTRET [Suspect]
     Route: 065
     Dates: start: 20060209, end: 20060309
  15. SOTRET [Suspect]
     Route: 065
     Dates: start: 20060605, end: 20060807
  16. ADVIL LIQUI-GELS [Concomitant]

REACTIONS (12)
  - ARTHRITIS [None]
  - BACK PAIN [None]
  - COLITIS ULCERATIVE [None]
  - ILEUS [None]
  - INFLAMMATORY BOWEL DISEASE [None]
  - LOWER GASTROINTESTINAL HAEMORRHAGE [None]
  - NECK INJURY [None]
  - PELVIC ABSCESS [None]
  - PRURITUS [None]
  - RHEUMATOID ARTHRITIS [None]
  - SACROILIITIS [None]
  - SMALL INTESTINAL OBSTRUCTION [None]
